FAERS Safety Report 4655546-8 (Version None)
Quarter: 2005Q2

REPORT INFORMATION
  Report Type: 
  Country: None (occurrence: None)
  Receive Date: 20050505
  Receipt Date: 20050422
  Transmission Date: 20051028
  Serious: Yes (Hospitalization)
  Sender: FDA-Public Use
  Company Number: 2005064310

PATIENT
  Sex: Male
  Weight: 79.3795 kg

DRUGS (2)
  1. BEXTRA [Suspect]
     Indication: BACK PAIN
     Dosage: (20 MG), ORAL
     Route: 048
  2. ALL OTHER THERAPEUTIC PRODUCTS [Concomitant]

REACTIONS (3)
  - PARAESTHESIA [None]
  - SHOULDER OPERATION [None]
  - SURGERY [None]
